FAERS Safety Report 8437649-5 (Version None)
Quarter: 2012Q2

REPORT INFORMATION
  Report Type: 
  Country: None (occurrence: None)
  Receive Date: 20120614
  Receipt Date: 20120413
  Transmission Date: 20120825
  Serious: No
  Sender: FDA-Public Use
  Company Number: US-AMGEN-USASP2012023598

PATIENT
  Sex: Female

DRUGS (9)
  1. PROLIA [Suspect]
     Indication: OSTEOPOROSIS POSTMENOPAUSAL
     Dosage: UNK
     Dates: start: 20120302
  2. XANAX [Concomitant]
  3. CYMBALTA [Concomitant]
  4. VITAMIN D [Concomitant]
  5. ATENOLOL [Concomitant]
  6. CALCIUM [Concomitant]
  7. ALPHAGAN [Concomitant]
  8. MAVIK [Concomitant]
  9. MULTI-VITAMINS [Concomitant]

REACTIONS (3)
  - NASOPHARYNGITIS [None]
  - RASH PRURITIC [None]
  - BLISTER [None]
